FAERS Safety Report 10986888 (Version 1)
Quarter: 2015Q2

REPORT INFORMATION
  Report Type: Spontaneous
  Country: CA (occurrence: None)
  Receive Date: 20150402
  Receipt Date: 20150402
  Transmission Date: 20150821
  Serious: Yes (Disabling)
  Sender: FDA-Public Use
  Company Number: 2800131

PATIENT
  Age: 82 Year
  Sex: Female
  Weight: 55.45 kg

DRUGS (20)
  1. CEFTRIAXONE. [Concomitant]
     Active Substance: CEFTRIAXONE
  2. HYDROMORPHONE [Concomitant]
     Active Substance: HYDROMORPHONE
  3. WARFARIN [Concomitant]
     Active Substance: WARFARIN
  4. METRONIDAZOLE. [Suspect]
     Active Substance: METRONIDAZOLE
     Indication: LIVER ABSCESS
     Route: 048
  5. NAPROXEN. [Concomitant]
     Active Substance: NAPROXEN
  6. PANTOPRAZOLE [Concomitant]
     Active Substance: PANTOPRAZOLE SODIUM
  7. SENOKOT [Concomitant]
     Active Substance: SENNOSIDES
  8. TYLENOL [Concomitant]
     Active Substance: ACETAMINOPHEN
  9. DILTIAZEM [Concomitant]
     Active Substance: DILTIAZEM
  10. DIMENHYDRINATE. [Concomitant]
     Active Substance: DIMENHYDRINATE
  11. SLOW-K [Concomitant]
     Active Substance: POTASSIUM CHLORIDE
  12. METRONIDAZOLE. [Suspect]
     Active Substance: METRONIDAZOLE
     Indication: CLOSTRIDIUM DIFFICILE INFECTION
     Dosage: 500 MG MILLIGRAM, 1 HOUR, INTRAVENOUS (NOT OTHERWISE SPECIFIED)
     Route: 042
  13. DOCUSATE [Concomitant]
     Active Substance: DOCUSATE
  14. VENTOLIN [Concomitant]
     Active Substance: ALBUTEROL SULFATE
  15. ATROVENT [Concomitant]
     Active Substance: IPRATROPIUM BROMIDE
  16. CIPRO //00697201/ [Concomitant]
  17. DICLOFENAC [Suspect]
     Active Substance: DICLOFENAC
  18. FLOVENT [Concomitant]
     Active Substance: FLUTICASONE PROPIONATE
  19. LEVOTHYROXINE [Concomitant]
     Active Substance: LEVOTHYROXINE
  20. RAMIPRIL. [Concomitant]
     Active Substance: RAMIPRIL

REACTIONS (3)
  - Guillain-Barre syndrome [None]
  - Polyneuropathy [None]
  - Neurotoxicity [None]
